FAERS Safety Report 22088955 (Version 6)
Quarter: 2023Q2

REPORT INFORMATION
  Report Type: Report from Study
  Country: CN (occurrence: CN)
  Receive Date: 20230313
  Receipt Date: 20230623
  Transmission Date: 20230722
  Serious: Yes (Other)
  Sender: FDA-Public Use
  Company Number: CN-FOSUNKITE-FOSUNKITE-20230153

PATIENT
  Age: 64 Year
  Sex: Female

DRUGS (16)
  1. AXICABTAGENE CILOLEUCEL [Suspect]
     Active Substance: AXICABTAGENE CILOLEUCEL
     Indication: Non-Hodgkin^s lymphoma
     Dosage: 1.0?10^8 CELLS (NUMBER OF CAR-T CELLS)
     Route: 042
     Dates: start: 20211116, end: 20211116
  2. FLUDARABINE [Suspect]
     Active Substance: FLUDARABINE PHOSPHATE
     Indication: Lymphodepletion
     Dosage: 45 MG
     Route: 041
     Dates: start: 20211110, end: 20211112
  3. CYCLOPHOSPHAMIDE [Suspect]
     Active Substance: CYCLOPHOSPHAMIDE
     Indication: Lymphodepletion
     Dosage: 0.765 G
     Route: 041
     Dates: start: 20211110, end: 20211112
  4. RITUXIMAB [Concomitant]
     Active Substance: RITUXIMAB
     Indication: Non-Hodgkin^s lymphoma
     Dosage: 568 MG, CYCLE 1
     Route: 041
     Dates: start: 20211025
  5. RITUXIMAB [Concomitant]
     Active Substance: RITUXIMAB
     Dosage: UNK
     Dates: start: 20211026, end: 20211029
  6. RITUXIMAB [Concomitant]
     Active Substance: RITUXIMAB
     Dosage: UNK
     Dates: start: 20211031
  7. ETOPOSIDE [Concomitant]
     Active Substance: ETOPOSIDE
     Dosage: UNK
     Dates: start: 20211026
  8. ETOPOSIDE [Concomitant]
     Active Substance: ETOPOSIDE
     Dosage: 0.03 G
     Route: 042
     Dates: start: 20211026, end: 20211029
  9. ETOPOSIDE [Concomitant]
     Active Substance: ETOPOSIDE
     Dosage: UNK
     Dates: start: 20211031
  10. CISPLATIN [Concomitant]
     Active Substance: CISPLATIN
     Dosage: 18 MG
     Route: 042
     Dates: start: 20211026, end: 20211029
  11. METHYLPREDNISOLONE SODIUM SUCCINATE [Concomitant]
     Active Substance: METHYLPREDNISOLONE SODIUM SUCCINATE
     Dosage: 500 MG
     Route: 042
     Dates: start: 20211026, end: 20211031
  12. CYTARABINE [Concomitant]
     Active Substance: CYTARABINE
     Indication: Non-Hodgkin^s lymphoma
     Dosage: 1.5 G
     Dates: start: 20211031
  13. IBRUTINIB [Concomitant]
     Active Substance: IBRUTINIB
     Indication: Hodgkin^s disease
     Dosage: ACCUMULATED DOSE 140MG, TREATMENT CYCLE 1
     Route: 048
     Dates: start: 20220217, end: 20220218
  14. IBRUTINIB [Concomitant]
     Active Substance: IBRUTINIB
     Dosage: 140 MG
     Route: 048
     Dates: start: 20211220, end: 20211220
  15. IBRUTINIB [Concomitant]
     Active Substance: IBRUTINIB
     Dosage: 140 MG
     Route: 048
     Dates: start: 20220219, end: 20220220
  16. IBRUTINIB [Concomitant]
     Active Substance: IBRUTINIB
     Dosage: 140 MG
     Route: 048
     Dates: start: 20220808, end: 20220808

REACTIONS (8)
  - Hypokalaemia [Recovered/Resolved]
  - Cytokine release syndrome [Recovered/Resolved]
  - Hyponatraemia [Recovered/Resolved]
  - Blood fibrinogen decreased [Recovered/Resolved]
  - Tremor [Recovered/Resolved]
  - Tremor [Recovered/Resolved]
  - White blood cell count decreased [Recovered/Resolved]
  - Neutrophil count decreased [Recovered/Resolved]

NARRATIVE: CASE EVENT DATE: 20211117
